FAERS Safety Report 17471493 (Version 1)
Quarter: 2020Q1

REPORT INFORMATION
  Report Type: Spontaneous
  Country: FR (occurrence: FR)
  Receive Date: 20200228
  Receipt Date: 20200228
  Transmission Date: 20200409
  Serious: Yes (Hospitalization)
  Sender: FDA-Public Use
  Company Number: FR-TEVA-2020-FR-1191908

PATIENT
  Age: 94 Year
  Sex: Female
  Weight: 69 kg

DRUGS (6)
  1. PREVISCAN 20 MG, COMPRIM? S?CABLE [Concomitant]
     Active Substance: FLUINDIONE
     Dosage: 0.5 DOSAGE FORMS
     Route: 048
  2. TRAMADOL (CHLORHYDRATE DE) [Suspect]
     Active Substance: TRAMADOL HYDROCHLORIDE
     Indication: PRODUCT USED FOR UNKNOWN INDICATION
     Dosage: 3 DOSAGE FORMS
     Route: 048
     Dates: start: 201907, end: 20190827
  3. LEXOMIL ROCHE COMPRIME BAGUETTE, COMPRIM? QUADRIS?CABLE [Suspect]
     Active Substance: BROMAZEPAM
     Indication: AGITATION
     Dosage: 0.75 DOSAGE FORMS
     Route: 048
     Dates: start: 20190813, end: 20190827
  4. ISOPHANE INSULIN [Concomitant]
     Active Substance: INSULIN NOS
     Dosage: 6 IU
     Route: 058
  5. DACUDOSES, SOLUTION POUR LAVAGE OPHTALMIQUE EN R?CIPIENT UNIDOSE [Concomitant]
     Dosage: 3 DOSAGE FORMS
     Route: 047
  6. CROMABAK 20 MG/ML, COLLYRE EN SOLUTION [Concomitant]
     Dosage: 3 GTT
     Route: 047

REACTIONS (4)
  - Agitation [Recovered/Resolved]
  - Coma [Recovered/Resolved]
  - Condition aggravated [Recovered/Resolved]
  - Hallucination [Recovered/Resolved]

NARRATIVE: CASE EVENT DATE: 20190827
